FAERS Safety Report 9644498 (Version 1)
Quarter: 2013Q4

REPORT INFORMATION
  Report Type: Spontaneous
  Country: US (occurrence: US)
  Receive Date: 20131025
  Receipt Date: 20131025
  Transmission Date: 20140711
  Serious: No
  Sender: FDA-Public Use
  Company Number: US-009507513-1310USA008829

PATIENT
  Sex: Female

DRUGS (2)
  1. DULERA [Suspect]
     Indication: ASTHMA
     Dosage: DOSE: 1 PUFF TWICE DAILY
     Route: 055
     Dates: start: 201303
  2. FLUTICASONE [Concomitant]

REACTIONS (4)
  - Wheezing [Recovering/Resolving]
  - Drug dose omission [Unknown]
  - Product quality issue [Unknown]
  - Incorrect dose administered [Unknown]
